FAERS Safety Report 19228932 (Version 2)
Quarter: 2021Q3

REPORT INFORMATION
  Report Type: Spontaneous
  Country: US (occurrence: US)
  Receive Date: 20210506
  Receipt Date: 20210802
  Transmission Date: 20211014
  Serious: Yes (Hospitalization)
  Sender: FDA-Public Use
  Company Number: US-TEVA-2021-US-1907284

PATIENT
  Age: 14 Year
  Sex: Female

DRUGS (20)
  1. BUDESONIDE. [Suspect]
     Active Substance: BUDESONIDE
     Indication: IMMUNOSUPPRESSANT DRUG THERAPY
  2. INFLIXIMAB [Suspect]
     Active Substance: INFLIXIMAB
     Indication: PROPHYLAXIS AGAINST GRAFT VERSUS HOST DISEASE
     Route: 065
  3. CAMPATH [Concomitant]
     Active Substance: ALEMTUZUMAB
     Indication: GRAFT VERSUS HOST DISEASE IN GASTROINTESTINAL TRACT
  4. INFLIXIMAB [Suspect]
     Active Substance: INFLIXIMAB
     Indication: IMMUNOSUPPRESSANT DRUG THERAPY
  5. CAMPATH [Concomitant]
     Active Substance: ALEMTUZUMAB
     Indication: GRAFT VERSUS HOST DISEASE IN SKIN
     Dosage: ADDED ON DAY 95
     Route: 065
  6. TACROLIMUS. [Suspect]
     Active Substance: TACROLIMUS
     Indication: PROPHYLAXIS AGAINST GRAFT VERSUS HOST DISEASE
     Route: 065
  7. MYCOPHENOLATE MOFETIL. [Suspect]
     Active Substance: MYCOPHENOLATE MOFETIL
     Indication: PROPHYLAXIS AGAINST GRAFT VERSUS HOST DISEASE
     Route: 065
  8. CICLOSPORIN [Suspect]
     Active Substance: CYCLOSPORINE
     Indication: PROPHYLAXIS AGAINST GRAFT VERSUS HOST DISEASE
     Route: 065
  9. BUDESONIDE. [Suspect]
     Active Substance: BUDESONIDE
     Indication: PROPHYLAXIS AGAINST GRAFT VERSUS HOST DISEASE
     Route: 065
  10. CICLOSPORIN [Suspect]
     Active Substance: CYCLOSPORINE
     Indication: IMMUNOSUPPRESSANT DRUG THERAPY
  11. GANCICLOVIR. [Suspect]
     Active Substance: GANCICLOVIR
     Dosage: 15 MG/KG DAILY;
     Route: 042
  12. METHYLPREDNISOLONE. [Suspect]
     Active Substance: METHYLPREDNISOLONE
     Indication: GRAFT VERSUS HOST DISEASE IN SKIN
     Dosage: 1?2 MG/KG PER DAY
     Route: 065
  13. METHYLPREDNISOLONE. [Suspect]
     Active Substance: METHYLPREDNISOLONE
     Indication: IMMUNOSUPPRESSANT DRUG THERAPY
  14. GANCICLOVIR. [Suspect]
     Active Substance: GANCICLOVIR
     Indication: ANTIVIRAL TREATMENT
     Dosage: 10 MG/KG DAILY;
     Route: 042
  15. TACROLIMUS. [Suspect]
     Active Substance: TACROLIMUS
     Indication: IMMUNOSUPPRESSANT DRUG THERAPY
  16. LETERMOVIR [Suspect]
     Active Substance: LETERMOVIR
     Indication: ANTIVIRAL TREATMENT
     Dosage: 480 MILLIGRAM DAILY;
     Route: 042
  17. FOSCARNET [Concomitant]
     Active Substance: FOSCARNET
     Dosage: 60 MG/KG DAILY; MAINTENANCE DOSING
     Route: 042
  18. FOSCARNET [Concomitant]
     Active Substance: FOSCARNET
     Indication: ANTIVIRAL TREATMENT
     Dosage: 180 MG/KG DAILY;
     Route: 042
  19. MYCOPHENOLATE MOFETIL. [Suspect]
     Active Substance: MYCOPHENOLATE MOFETIL
     Indication: IMMUNOSUPPRESSANT DRUG THERAPY
  20. LETERMOVIR [Suspect]
     Active Substance: LETERMOVIR
     Indication: ANTIVIRAL TREATMENT
     Dosage: 480 MILLIGRAM DAILY;
     Route: 048

REACTIONS (6)
  - Cytomegalovirus enterocolitis [Recovering/Resolving]
  - Enteritis [Unknown]
  - Off label use [Unknown]
  - Cytomegalovirus test positive [Recovering/Resolving]
  - Drug resistance [Unknown]
  - Drug ineffective [Unknown]
